FAERS Safety Report 25225165 (Version 1)
Quarter: 2025Q2

REPORT INFORMATION
  Report Type: Report from Study
  Country: US (occurrence: US)
  Receive Date: 20250422
  Receipt Date: 20250422
  Transmission Date: 20250716
  Serious: Yes (Other)
  Sender: ALEXION PHARMACEUTICALS
  Company Number: US-ASTRAZENECA-202504USA013708US

PATIENT
  Age: 42 Year

DRUGS (1)
  1. STRENSIQ [Suspect]
     Active Substance: ASFOTASE ALFA
     Indication: Phosphorus metabolism disorder
     Dosage: 80 MILLIGRAM, TIW
     Route: 065

REACTIONS (31)
  - Adrenocortical insufficiency acute [Unknown]
  - Abnormal loss of weight [Unknown]
  - Decreased appetite [Unknown]
  - Anxiety [Unknown]
  - Abdominal pain upper [Unknown]
  - Blood pressure increased [Unknown]
  - Vomiting [Unknown]
  - Menstruation irregular [Unknown]
  - Stress [Unknown]
  - Sleep deficit [Unknown]
  - Neoplasm skin [Unknown]
  - Mean cell volume increased [Unknown]
  - Mean cell haemoglobin increased [Unknown]
  - Blood potassium decreased [Unknown]
  - Alanine aminotransferase increased [Unknown]
  - Cortisol increased [Unknown]
  - Dehydroepiandrosterone decreased [Unknown]
  - Blood cholesterol increased [Unknown]
  - Superficial injury of eye [Unknown]
  - Eye pain [Unknown]
  - Night sweats [Unknown]
  - Pain in extremity [Unknown]
  - Ligament sprain [Unknown]
  - Weight increased [Unknown]
  - Injection site pain [Unknown]
  - Neutrophil count increased [Unknown]
  - Lymphocyte count decreased [Unknown]
  - Blood alkaline phosphatase decreased [Unknown]
  - Blood calcium increased [Unknown]
  - Low density lipoprotein increased [Unknown]
  - Vitamin B6 increased [Unknown]
